FAERS Safety Report 8510869-7 (Version None)
Quarter: 2012Q3

REPORT INFORMATION
  Report Type: 
  Country: None (occurrence: None)
  Receive Date: 20120709
  Receipt Date: 20120709
  Transmission Date: 20120928
  Serious: Yes (Hospitalization)
  Sender: FDA-Public Use
  Company Number: None

PATIENT
  Sex: Female
  Weight: 53.8 kg

DRUGS (9)
  1. MORPHINE CONTROLLED RELEASE 30 MG PO Q12H [Concomitant]
  2. DOCUSATE SODIUM 100 MG PO TID [Concomitant]
  3. NERATINIB (40MG, PFIZER) [Suspect]
     Indication: BREAST CANCER METASTATIC
     Dosage: 240MG, QD, PO
     Route: 048
     Dates: start: 20120504, end: 20120616
  4. ONDANSETRON HCL 8 MG PO Q8H PRN FOR NAUSEA [Concomitant]
  5. SENNOSIDES 2 TABLET(S) PO BID [Concomitant]
  6. MAGNESIUM HYDROXIDE 30 ML PO QD PRN FOR CONSTIPATION [Concomitant]
  7. MORPHINE IMMEDIATE RELEASE 15 MG PO QQH PRN FOR PAIN [Concomitant]
  8. COMPAZINE 10 MG PO Q6H PRN FOR NAUSEA [Concomitant]
  9. MORPHINE CONTROLLED RELEASE 15 MG PO Q12H [Concomitant]

REACTIONS (4)
  - CHILLS [None]
  - INADEQUATE ANALGESIA [None]
  - NAUSEA [None]
  - ABDOMINAL PAIN [None]
